FAERS Safety Report 9361087 (Version 1)
Quarter: 2013Q2

REPORT INFORMATION
  Report Type: Spontaneous
  Country: NO (occurrence: NO)
  Receive Date: 20130621
  Receipt Date: 20130621
  Transmission Date: 20140414
  Serious: Yes (Other)
  Sender: FDA-Public Use
  Company Number: PHHY2013NO062034

PATIENT
  Age: 48 Year
  Sex: Female

DRUGS (12)
  1. ACLASTA [Suspect]
     Indication: SAPHO SYNDROME
     Dosage: 5 MG
     Route: 042
     Dates: start: 201209
  2. PREDNISOLON [Concomitant]
     Indication: SAPHO SYNDROME
     Dosage: 5 MG, QD
  3. METHOTREXAT [Concomitant]
     Indication: SAPHO SYNDROME
     Dosage: 20 MG, QW
  4. ALBYL-E [Concomitant]
     Indication: ANTICOAGULANT THERAPY
     Dosage: 75 MG, QD
  5. ATACAND [Concomitant]
     Indication: HYPERTENSION
     Dosage: 16 MG, QD
  6. AMLODIPINE [Concomitant]
     Indication: HYPERTENSION
     Dosage: 10 MG, QD
  7. SELO-ZOK [Concomitant]
     Indication: HYPERTENSION
     Dosage: 100 MG, QD
  8. MONOKET OD [Concomitant]
     Dosage: 100 MG, QD
  9. SIMVASTATIN [Concomitant]
     Indication: HYPERCHOLESTEROLAEMIA
     Dosage: 40 MG, QD
  10. NITROLINGUAL [Concomitant]
     Dosage: WHEN NEEDED
  11. FOLSYRE NAF [Concomitant]
     Dosage: 1 MG/ DAILY, EXCEPT THE SAME DAY AS METHOTREXATE AND THE DAY AFTER.
  12. NITROGLYCERINE [Concomitant]
     Dosage: UNK

REACTIONS (1)
  - Prinzmetal angina [Recovering/Resolving]
